FAERS Safety Report 14606724 (Version 3)
Quarter: 2018Q1

REPORT INFORMATION
  Report Type: Spontaneous
  Country: US (occurrence: US)
  Receive Date: 20180307
  Receipt Date: 20180327
  Transmission Date: 20180509
  Serious: Yes (Other)
  Sender: FDA-Public Use
  Company Number: US-009507513-1803USA000881

PATIENT
  Age: 24 Year
  Sex: Female
  Weight: 145.58 kg

DRUGS (2)
  1. NEXPLANON [Suspect]
     Active Substance: ETONOGESTREL
     Indication: CONTRACEPTION
     Dosage: 1 IMPLANT, 3 YEARS OF USE
     Route: 059
     Dates: end: 20180104
  2. NEXPLANON [Suspect]
     Active Substance: ETONOGESTREL
     Dosage: 1 IMPLANT, ONE TIME IN LEFT ARM
     Route: 058
     Dates: start: 20180104, end: 20180218

REACTIONS (10)
  - Swelling [Unknown]
  - Implant site infection [Recovered/Resolved]
  - Implant site swelling [Unknown]
  - Erythema [Unknown]
  - Implant site scar [Unknown]
  - Device deployment issue [Recovered/Resolved]
  - Wrong technique in product usage process [Unknown]
  - Device expulsion [Recovered/Resolved]
  - Implant site pain [Unknown]
  - Implant site nodule [Unknown]

NARRATIVE: CASE EVENT DATE: 2018
